FAERS Safety Report 21490645 (Version 2)
Quarter: 2023Q1

REPORT INFORMATION
  Report Type: Report from Study
  Country: US (occurrence: US)
  Receive Date: 20221021
  Receipt Date: 20230126
  Transmission Date: 20230418
  Serious: Yes (Hospitalization, Other)
  Sender: FDA-Public Use
  Company Number: US-ABBVIE-4166219

PATIENT
  Age: 63 Year
  Sex: Female

DRUGS (1)
  1. VENCLEXTA [Suspect]
     Active Substance: VENETOCLAX
     Indication: Acute myeloid leukaemia
     Route: 048

REACTIONS (7)
  - Haemoglobin decreased [Unknown]
  - Alopecia [Unknown]
  - Asthenia [Unknown]
  - Constipation [Unknown]
  - Fatigue [Unknown]
  - White blood cell count decreased [Unknown]
  - Appetite disorder [Unknown]

NARRATIVE: CASE EVENT DATE: 20221201
